FAERS Safety Report 8793295 (Version 1)
Quarter: 2012Q4

REPORT INFORMATION
  Report Type: 
  Country: GR (occurrence: GR)
  Receive Date: 20120917
  Receipt Date: 20120917
  Transmission Date: 20130627
  Serious: Yes (Other)
  Sender: FDA-Public Use
  Company Number: GR-PFIZER INC-2012226406

PATIENT
  Age: 78 Year
  Sex: Female

DRUGS (4)
  1. LYRICA [Suspect]
     Indication: PAIN
     Dosage: 125 mg, 1x/day
     Route: 048
     Dates: start: 201207, end: 20120809
  2. CYMBALTA [Concomitant]
     Dosage: 60 mg, 1x/day
     Route: 048
  3. STEDON [Concomitant]
     Dosage: 2.5 mg, 1x/day
     Route: 048
  4. TEGRETOL [Concomitant]
     Indication: EPILEPSY
     Dosage: 200 mg, 2x/day
     Route: 048

REACTIONS (4)
  - Fall [Recovered/Resolved]
  - Dyskinesia [Recovered/Resolved]
  - Bradyphrenia [Recovered/Resolved]
  - Asterixis [Recovered/Resolved]
